FAERS Safety Report 22325503 (Version 1)
Quarter: 2023Q2

REPORT INFORMATION
  Report Type: Report from Study
  Country: US (occurrence: None)
  Receive Date: 20230516
  Receipt Date: 20230516
  Transmission Date: 20230721
  Serious: Yes (Hospitalization)
  Sender: FDA-Public Use
  Company Number: US-Eisai Medical Research-EC-2023-139671

PATIENT
  Age: 73 Year
  Sex: Female
  Weight: 50.5 kg

DRUGS (12)
  1. LENVIMA [Suspect]
     Active Substance: LENVATINIB
     Indication: Endometrial cancer
     Route: 048
     Dates: start: 202304, end: 202305
  2. VITAMIN B12 [Concomitant]
     Active Substance: CYANOCOBALAMIN
  3. VITAMIN C [Concomitant]
     Active Substance: ASCORBIC ACID
  4. ELIQUIS [Concomitant]
     Active Substance: APIXABAN
  5. INJECTAFER [Concomitant]
     Active Substance: FERRIC CARBOXYMALTOSE
  6. KETOROLAC [Concomitant]
     Active Substance: KETOROLAC TROMETHAMINE
  7. KEYTRUDA [Concomitant]
     Active Substance: PEMBROLIZUMAB
  8. LISINOPRIL [Concomitant]
     Active Substance: LISINOPRIL
  9. MOTRIN IB [Concomitant]
     Active Substance: IBUPROFEN
  10. PERCOCET [Concomitant]
     Active Substance: ACETAMINOPHEN\OXYCODONE HYDROCHLORIDE
  11. TYLENOL [Concomitant]
     Active Substance: ACETAMINOPHEN
  12. ZOLEDRONIC ACID [Concomitant]
     Active Substance: ZOLEDRONIC ACID

REACTIONS (2)
  - Asthenia [Unknown]
  - Sluggishness [Not Recovered/Not Resolved]

NARRATIVE: CASE EVENT DATE: 20230101
